FAERS Safety Report 7114717-1 (Version None)
Quarter: 2010Q4

REPORT INFORMATION
  Report Type: 
  Country: None (occurrence: None)
  Receive Date: 20101122
  Receipt Date: 20101115
  Transmission Date: 20110411
  Serious: No
  Sender: FDA-Public Use
  Company Number: US-BIOGENIDEC-2010BI040217

PATIENT
  Age: 61 Year
  Sex: Female
  Weight: 88 kg

DRUGS (10)
  1. AVONEX [Suspect]
     Indication: MULTIPLE SCLEROSIS
     Route: 030
     Dates: start: 19990528
  2. AVONEX [Suspect]
     Route: 030
  3. ASPIRIN [Concomitant]
     Route: 048
  4. VITAMIN B-12 [Concomitant]
     Indication: SUPPLEMENTATION THERAPY
     Route: 048
  5. CALCIUM [Concomitant]
     Indication: SUPPLEMENTATION THERAPY
     Route: 048
  6. POTASSIUM CHLORIDE [Concomitant]
     Indication: SUPPLEMENTATION THERAPY
     Route: 048
  7. EQUATE PM [Concomitant]
     Indication: INSOMNIA
     Route: 048
  8. DILANTIN [Concomitant]
     Indication: CONVULSION
     Route: 048
     Dates: start: 19840101
  9. NEXIUM [Concomitant]
     Indication: HIATUS HERNIA
     Route: 048
  10. SYNTHROID [Concomitant]
     Indication: THYROID DISORDER
     Route: 048

REACTIONS (8)
  - ABASIA [None]
  - CHEST PAIN [None]
  - DYSPNOEA [None]
  - JOINT DISLOCATION [None]
  - MUSCULOSKELETAL DISORDER [None]
  - MUSCULOSKELETAL PAIN [None]
  - NECK PAIN [None]
  - ROAD TRAFFIC ACCIDENT [None]
